FAERS Safety Report 4839578-2 (Version None)
Quarter: 2005Q4

REPORT INFORMATION
  Report Type: 
  Country: None (occurrence: None)
  Receive Date: 20051128
  Receipt Date: 20051128
  Transmission Date: 20060501
  Serious: Yes (Hospitalization, Other)
  Sender: FDA-Public Use
  Company Number: None

PATIENT
  Age: 77 Year
  Sex: Male
  Weight: 63.9572 kg

DRUGS (1)
  1. KEPPRA [Suspect]
     Indication: CONVULSION
     Dosage: 500 MG   2X/DAY   PO
     Route: 048
     Dates: start: 20051017, end: 20051101

REACTIONS (9)
  - ANOREXIA [None]
  - ASTHENIA [None]
  - CATATONIA [None]
  - CLOSTRIDIAL INFECTION [None]
  - COORDINATION ABNORMAL [None]
  - DEPRESSED LEVEL OF CONSCIOUSNESS [None]
  - DEPRESSION [None]
  - IMMOBILE [None]
  - SOMNOLENCE [None]
